FAERS Safety Report 4518004-7 (Version None)
Quarter: 2004Q4

REPORT INFORMATION
  Report Type: 
  Country: None (occurrence: None)
  Receive Date: 20041130
  Receipt Date: 20041116
  Transmission Date: 20050328
  Serious: Yes (Life-Threatening, Other)
  Sender: FDA-Public Use
  Company Number: FR_031103206

PATIENT
  Age: 68 Year
  Sex: Female
  Weight: 53 kg

DRUGS (10)
  1. PERGOLIDE MESYLATE [Suspect]
     Indication: PARKINSON'S DISEASE
     Dosage: 0.25 MG/3 DAY
     Dates: start: 20010921, end: 20040415
  2. MATADIX (AMANTADINE HYDROCHLORIDE) [Concomitant]
  3. SINEMET [Concomitant]
  4. MODOPAR 125 DISPERSIBLE [Concomitant]
  5. ARTANE [Concomitant]
  6. COMTAN [Concomitant]
  7. LASIX [Concomitant]
  8. RAMIPRIL [Concomitant]
  9. BISOPROLOL FUMARATE [Concomitant]
  10. ALDACTONE [Concomitant]

REACTIONS (6)
  - ACUTE PULMONARY OEDEMA [None]
  - AORTIC VALVE INCOMPETENCE [None]
  - CARDIAC FAILURE ACUTE [None]
  - DILATATION ATRIAL [None]
  - DYSKINESIA [None]
  - MITRAL VALVE INCOMPETENCE [None]
